FAERS Safety Report 6713227-0 (Version None)
Quarter: 2010Q2

REPORT INFORMATION
  Report Type: 
  Country: None (occurrence: None)
  Receive Date: 20100506
  Receipt Date: 20100427
  Transmission Date: 20101027
  Serious: Yes (Other)
  Sender: FDA-Public Use
  Company Number: PHHY2010BR27647

PATIENT
  Sex: Female

DRUGS (2)
  1. FORASEQ [Suspect]
  2. DIOVAN [Concomitant]

REACTIONS (2)
  - SURGERY [None]
  - TREATMENT NONCOMPLIANCE [None]
